FAERS Safety Report 25837555 (Version 1)
Quarter: 2025Q3

REPORT INFORMATION
  Report Type: Report from Study
  Country: EU (occurrence: EU)
  Receive Date: 20250923
  Receipt Date: 20250923
  Transmission Date: 20251021
  Serious: Yes (Other)
  Sender: MYLAN
  Company Number: EU-BRISTOL-MYERS SQUIBB COMPANY-2025-118354

PATIENT
  Age: 56 Year
  Sex: Male
  Weight: 76.3 kg

DRUGS (20)
  1. OXALIPLATIN [Suspect]
     Active Substance: OXALIPLATIN
     Indication: Product used for unknown indication
  2. OXALIPLATIN [Suspect]
     Active Substance: OXALIPLATIN
     Route: 065
  3. OXALIPLATIN [Suspect]
     Active Substance: OXALIPLATIN
     Route: 065
  4. OXALIPLATIN [Suspect]
     Active Substance: OXALIPLATIN
  5. NIVOLUMAB [Suspect]
     Active Substance: NIVOLUMAB
     Indication: Oesophageal adenocarcinoma
     Dosage: 240 MILLIGRAM, BIWEEKLY
     Dates: start: 20250214
  6. NIVOLUMAB [Suspect]
     Active Substance: NIVOLUMAB
     Dosage: 240 MILLIGRAM, BIWEEKLY
     Route: 042
     Dates: start: 20250214
  7. NIVOLUMAB [Suspect]
     Active Substance: NIVOLUMAB
     Dosage: 240 MILLIGRAM, BIWEEKLY
     Route: 042
     Dates: start: 20250214
  8. NIVOLUMAB [Suspect]
     Active Substance: NIVOLUMAB
     Dosage: 240 MILLIGRAM, BIWEEKLY
     Dates: start: 20250214
  9. APREPITANT [Concomitant]
     Active Substance: APREPITANT
     Indication: Nausea
  10. APREPITANT [Concomitant]
     Active Substance: APREPITANT
  11. APREPITANT [Concomitant]
     Active Substance: APREPITANT
     Route: 065
  12. APREPITANT [Concomitant]
     Active Substance: APREPITANT
     Route: 065
  13. APREPITANT [Concomitant]
     Active Substance: APREPITANT
  14. APREPITANT [Concomitant]
     Active Substance: APREPITANT
  15. APREPITANT [Concomitant]
     Active Substance: APREPITANT
     Route: 065
  16. APREPITANT [Concomitant]
     Active Substance: APREPITANT
     Route: 065
  17. DIETARY SUPPLEMENT [Concomitant]
     Active Substance: DIETARY SUPPLEMENT
     Indication: Malnutrition
  18. DIETARY SUPPLEMENT [Concomitant]
     Active Substance: DIETARY SUPPLEMENT
     Route: 065
  19. DIETARY SUPPLEMENT [Concomitant]
     Active Substance: DIETARY SUPPLEMENT
     Route: 065
  20. DIETARY SUPPLEMENT [Concomitant]
     Active Substance: DIETARY SUPPLEMENT

REACTIONS (7)
  - Polyarthritis [Not Recovered/Not Resolved]
  - Neuropathy peripheral [Unknown]
  - Neutropenia [Unknown]
  - Tryptase increased [Unknown]
  - Latent tuberculosis [Unknown]
  - Asthenia [Unknown]
  - Hypersensitivity [Unknown]

NARRATIVE: CASE EVENT DATE: 20250403
